FAERS Safety Report 9423656 (Version 1)
Quarter: 2013Q3

REPORT INFORMATION
  Report Type: Spontaneous
  Country: CA (occurrence: CA)
  Receive Date: 20130726
  Receipt Date: 20130726
  Transmission Date: 20140515
  Serious: Yes (Hospitalization, Other)
  Sender: FDA-Public Use
  Company Number: CA-ROCHE-1188122

PATIENT
  Age: 33 Year
  Sex: Female

DRUGS (3)
  1. ACCUTANE [Suspect]
     Indication: ACNE
     Route: 065
     Dates: start: 19960401, end: 1996
  2. PREDNISONE [Suspect]
     Indication: ACNE
     Route: 065
     Dates: start: 200508, end: 200601
  3. PREDNISONE [Suspect]
     Route: 065
     Dates: start: 200603, end: 200605

REACTIONS (6)
  - Colitis ulcerative [Not Recovered/Not Resolved]
  - Crohn^s disease [Unknown]
  - Colorectal cancer [Unknown]
  - Colon injury [Unknown]
  - Sacroiliitis [Not Recovered/Not Resolved]
  - Pouchitis [Unknown]
